FAERS Safety Report 24993869 (Version 3)
Quarter: 2025Q1

REPORT INFORMATION
  Report Type: Spontaneous
  Country: US (occurrence: US)
  Receive Date: 20250221
  Receipt Date: 20250331
  Transmission Date: 20250409
  Serious: No
  Sender: ELI LILLY AND COMPANY
  Company Number: US-ELI_LILLY_AND_COMPANY-US202502012346

PATIENT
  Age: 67 Year

DRUGS (1)
  1. ZEPBOUND [Suspect]
     Active Substance: TIRZEPATIDE
     Indication: Product used for unknown indication
     Route: 058

REACTIONS (9)
  - Skin burning sensation [Unknown]
  - Erythema [Recovering/Resolving]
  - Feeling hot [Recovering/Resolving]
  - Cold sweat [Unknown]
  - Body temperature increased [Unknown]
  - Malaise [Unknown]
  - Nausea [Unknown]
  - Swelling face [Recovering/Resolving]
  - Hypersensitivity [Recovering/Resolving]

NARRATIVE: CASE EVENT DATE: 20250216
